FAERS Safety Report 22215860 (Version 1)
Quarter: 2023Q2

REPORT INFORMATION
  Report Type: Spontaneous
  Country: US (occurrence: US)
  Receive Date: 20230417
  Receipt Date: 20230417
  Transmission Date: 20230721
  Serious: No
  Sender: FDA-Public Use
  Company Number: US-drreddys-SPO/USA/23/0162749

PATIENT
  Age: 15 Year

DRUGS (3)
  1. ZENATANE [Suspect]
     Active Substance: ISOTRETINOIN
     Indication: Product used for unknown indication
     Dosage: RMA ISSUE DATE : 02 NOVEMBER 2022 11:33:51 AM
  2. ZENATANE [Suspect]
     Active Substance: ISOTRETINOIN
     Dosage: RMA ISSUE DATE : 30 NOVEMBER 2022 09:12:15 AM
  3. ZENATANE [Suspect]
     Active Substance: ISOTRETINOIN
     Dosage: RMA ISSUE DATE : 18 JANUARY 2023 11:53:35 AM AND 16 FEBRUARY 2023 09:38:02 AM

REACTIONS (1)
  - Dry skin [Unknown]
